FAERS Safety Report 9734194 (Version 1)
Quarter: 2013Q4

REPORT INFORMATION
  Report Type: Spontaneous
  Country: US (occurrence: US)
  Receive Date: 20131205
  Receipt Date: 20131205
  Transmission Date: 20140711
  Serious: No
  Sender: FDA-Public Use
  Company Number: US-GILEAD-2013-0088861

PATIENT
  Age: 59 Year
  Sex: Female

DRUGS (6)
  1. LETAIRIS [Suspect]
     Indication: PORTOPULMONARY HYPERTENSION
     Dosage: 5 MG, QD
     Route: 048
     Dates: start: 20131012
  2. LETAIRIS [Suspect]
     Indication: PULMONARY HYPERTENSION
  3. FUROSEMIDE [Concomitant]
  4. SILDENAFIL [Concomitant]
  5. POTASSIUM [Concomitant]
  6. ZADITOR                            /00495201/ [Concomitant]

REACTIONS (5)
  - Weight decreased [Unknown]
  - Oedema peripheral [Unknown]
  - Weight increased [Recovered/Resolved]
  - Swelling face [Unknown]
  - Flushing [Recovering/Resolving]
